FAERS Safety Report 12675428 (Version 3)
Quarter: 2016Q3

REPORT INFORMATION
  Report Type: Report from Study
  Country: US (occurrence: US)
  Receive Date: 20160823
  Receipt Date: 20160930
  Transmission Date: 20161109
  Serious: Yes (Death, Hospitalization, Other)
  Sender: FDA-Public Use
  Company Number: US-009507513-1608USA010511

PATIENT
  Age: 44 Year
  Sex: Female

DRUGS (1)
  1. NOXAFIL [Suspect]
     Active Substance: POSACONAZOLE
     Indication: CANDIDA INFECTION
     Dosage: 400MG ONCE A DAY
     Route: 048
     Dates: start: 20160814

REACTIONS (3)
  - Overdose [Unknown]
  - Cardiogenic shock [Fatal]
  - Mitral valve repair [Fatal]

NARRATIVE: CASE EVENT DATE: 20160814
